FAERS Safety Report 13774379 (Version 1)
Quarter: 2017Q3

REPORT INFORMATION
  Report Type: Spontaneous
  Country: US (occurrence: US)
  Receive Date: 20170720
  Receipt Date: 20170720
  Transmission Date: 20171127
  Serious: Yes (Disabling)
  Sender: FDA-Public Use
  Company Number: None

PATIENT
  Age: 62 Year
  Sex: Female
  Weight: 51.75 kg

DRUGS (9)
  1. PERCOCET [Concomitant]
     Active Substance: ACETAMINOPHEN\OXYCODONE HYDROCHLORIDE
  2. ATIVAN [Concomitant]
     Active Substance: LORAZEPAM
  3. VENILIN [Concomitant]
  4. FENTANYL. [Concomitant]
     Active Substance: FENTANYL
  5. LYRICA [Suspect]
     Active Substance: PREGABALIN
     Indication: PAIN
     Dosage: ?          OTHER STRENGTH:MG;QUANTITY:1 CAPSULE(S);?3 TIMES A DAY ORAL
     Route: 048
     Dates: start: 20070101
  6. FLEXERIL [Concomitant]
     Active Substance: CYCLOBENZAPRINE HYDROCHLORIDE
  7. MELOXICAM. [Concomitant]
     Active Substance: MELOXICAM
  8. OXYCONTIN [Concomitant]
     Active Substance: OXYCODONE HYDROCHLORIDE
  9. MULTIPLE VITAMIN [Concomitant]
     Active Substance: VITAMINS

REACTIONS (9)
  - Arthritis [None]
  - Portal hypertension [None]
  - Muscle atrophy [None]
  - Dizziness [None]
  - Pain [None]
  - Myositis [None]
  - Euphoric mood [None]
  - Impaired gastric emptying [None]
  - Decreased appetite [None]

NARRATIVE: CASE EVENT DATE: 20070101
